FAERS Safety Report 14173923 (Version 1)
Quarter: 2017Q4

REPORT INFORMATION
  Report Type: Spontaneous
  Country: NO (occurrence: NO)
  Receive Date: 20171109
  Receipt Date: 20171109
  Transmission Date: 20180321
  Serious: Yes (Hospitalization, Other)
  Sender: FDA-Public Use
  Company Number: NO-SHIRE-NO201725604

PATIENT

DRUGS (1)
  1. REVESTIVE [Suspect]
     Active Substance: TEDUGLUTIDE
     Indication: SHORT-BOWEL SYNDROME
     Route: 065

REACTIONS (6)
  - Frequent bowel movements [Unknown]
  - Fatigue [Unknown]
  - Muscle spasms [Unknown]
  - Sinus tachycardia [Unknown]
  - Acute kidney injury [Unknown]
  - Dehydration [Unknown]
